FAERS Safety Report 23426697 (Version 1)
Quarter: 2024Q1

REPORT INFORMATION
  Report Type: Spontaneous
  Country: SA (occurrence: SA)
  Receive Date: 20240122
  Receipt Date: 20240122
  Transmission Date: 20240410
  Serious: Yes (Death, Hospitalization)
  Sender: FDA-Public Use
  Company Number: SA-SA-SAC20240119000841

PATIENT
  Age: 1 Year
  Sex: Female
  Weight: 14 kg

DRUGS (2)
  1. CEREZYME [Suspect]
     Active Substance: IMIGLUCERASE
     Indication: Gaucher^s disease
     Dosage: 2 DF (VIALS), QOW
     Route: 065
  2. CEREZYME [Suspect]
     Active Substance: IMIGLUCERASE
     Dosage: 3 DF (VIALS), QOW
     Route: 065

REACTIONS (2)
  - Gaucher^s disease type III [Fatal]
  - Disease progression [Fatal]
